FAERS Safety Report 9871360 (Version 2)
Quarter: 2014Q1

REPORT INFORMATION
  Report Type: Report from Study
  Country: BE (occurrence: BE)
  Receive Date: 20140205
  Receipt Date: 20140205
  Transmission Date: 20141002
  Serious: Yes (Other)
  Sender: FDA-Public Use
  Company Number: BE-ELI_LILLY_AND_COMPANY-BE201312006141

PATIENT
  Age: 53 Year
  Sex: Male
  Weight: 106.6 kg

DRUGS (6)
  1. OLANZAPINE LONG-ACTING IM [Suspect]
     Indication: SCHIZOPHRENIA
     Dosage: UNK
     Route: 030
     Dates: start: 20121016
  2. OLANZAPINE LONG-ACTING IM [Suspect]
     Dosage: UNK
     Route: 030
     Dates: start: 20131114
  3. CLOMIPRAMINE [Concomitant]
     Indication: DEPRESSION
     Dosage: UNK
     Dates: start: 20121029, end: 20130107
  4. CLOMIPRAMINE [Concomitant]
     Dosage: UNK
     Dates: start: 20131114
  5. DULOXETINE [Concomitant]
     Indication: DEPRESSION
     Dosage: UNK
     Dates: start: 20121029, end: 20130107
  6. DULOXETINE [Concomitant]
     Dosage: UNK
     Dates: start: 20131114

REACTIONS (1)
  - Metabolic syndrome [Unknown]
